FAERS Safety Report 23600889 (Version 1)
Quarter: 2024Q1

REPORT INFORMATION
  Report Type: Spontaneous
  Country: NL (occurrence: NL)
  Receive Date: 20240306
  Receipt Date: 20240306
  Transmission Date: 20240410
  Serious: Yes (Other)
  Sender: FDA-Public Use
  Company Number: None

PATIENT
  Age: 56 Year
  Sex: Female
  Weight: 82 kg

DRUGS (2)
  1. ESTRADIOL [Suspect]
     Active Substance: ESTRADIOL
     Indication: Menopausal symptoms
     Dosage: 2X PER WK, ESTRADIOL PLEISTER 100UG/24UUR (SYSTEN) / BRAND NAME NOT SPECIFIED
     Route: 065
     Dates: start: 20240108, end: 20240109
  2. PROGESTERONE [Suspect]
     Active Substance: PROGESTERONE
     Indication: Menopause
     Dosage: 1 PIECE ONCE A DAY,  UTROGESTAN CAPSULE 100MG
     Route: 065
     Dates: start: 20240108, end: 20240109

REACTIONS (11)
  - Hypersensitivity [Recovered/Resolved]
  - Peripheral swelling [Recovered/Resolved]
  - Anxiety [Recovered/Resolved]
  - Dyspnoea [Recovered/Resolved]
  - Abdominal pain lower [Recovered/Resolved]
  - Paraesthesia [Recovered/Resolved]
  - Pharyngeal swelling [Recovered/Resolved]
  - Affect lability [Recovered/Resolved]
  - Restlessness [Recovered/Resolved]
  - Muscle contractions involuntary [Recovered/Resolved]
  - Nasal congestion [Recovered/Resolved]
